FAERS Safety Report 7477002-4 (Version None)
Quarter: 2011Q2

REPORT INFORMATION
  Report Type: 
  Country: None (occurrence: None)
  Receive Date: 20110512
  Receipt Date: 20110510
  Transmission Date: 20111010
  Serious: Yes (Life-Threatening, Hospitalization)
  Sender: FDA-Public Use
  Company Number: JP-B.I. PHARMACEUTICALS,INC./RIDGEFIELD-2011-BP-12680NB

PATIENT
  Age: 86 Year
  Sex: Female

DRUGS (9)
  1. TAKEPRON [Concomitant]
     Dosage: 15 MG
     Route: 048
  2. ASPIRIN [Concomitant]
     Dosage: 100 MG
     Route: 048
  3. LASIX [Concomitant]
     Dosage: 40 MG
     Route: 048
     Dates: start: 20110421
  4. HERBESSER R [Concomitant]
     Dosage: 100 MG
     Route: 048
  5. LANIRAPID [Concomitant]
     Dosage: 0.025 MG
     Route: 048
  6. MUCODYNE [Concomitant]
     Dosage: 1500 MG
     Route: 048
  7. PRADAXA [Suspect]
     Dosage: 220 MG
     Route: 048
     Dates: start: 20110421, end: 20110427
  8. ALDACTONE [Suspect]
     Dosage: 25 MG
     Route: 048
     Dates: start: 20110421, end: 20110427
  9. CO-DIO [Concomitant]
     Dosage: 1DF
     Route: 048

REACTIONS (2)
  - CARDIO-RESPIRATORY ARREST [None]
  - MULTI-ORGAN FAILURE [None]
